FAERS Safety Report 7737528-2 (Version None)
Quarter: 2011Q3

REPORT INFORMATION
  Report Type: 
  Country: None (occurrence: None)
  Receive Date: 20110908
  Receipt Date: 20110830
  Transmission Date: 20111222
  Serious: Yes (Hospitalization, Other)
  Sender: FDA-Public Use
  Company Number: AR-US-EMD SERONO, INC.-7073650

PATIENT
  Sex: Male

DRUGS (1)
  1. SAIZEN [Suspect]
     Indication: FOETAL GROWTH RESTRICTION
     Dates: start: 20100201, end: 20110711

REACTIONS (3)
  - DRUG INEFFECTIVE [None]
  - RESPIRATORY DISORDER [None]
  - TYPE 1 DIABETES MELLITUS [None]
